FAERS Safety Report 9947989 (Version 1)
Quarter: 2014Q1

REPORT INFORMATION
  Report Type: Spontaneous
  Country: US (occurrence: None)
  Receive Date: 20140122
  Receipt Date: 20140122
  Transmission Date: 20141002
  Serious: No
  Sender: FDA-Public Use
  Company Number: AP356-00197-SPO-US

PATIENT
  Age: 59 Year
  Sex: Female
  Weight: 70 kg

DRUGS (10)
  1. BELVIQ (LORCASERIN HYDROCHLORIDE) [Suspect]
     Indication: WEIGHT CONTROL
     Route: 048
     Dates: start: 20131023
  2. CRESTOR (ROSUVASTATIN) [Concomitant]
  3. METOPROLOL (METOPROLOL) [Concomitant]
  4. LOSARTAN (LOSARTAN) [Concomitant]
  5. CHLORTHALIDONE (CHLORTALIDONE) [Concomitant]
  6. LYRICA (PREGABALIN) [Concomitant]
  7. SYNTHROID (LEVOTHYROXINE SODIUM) [Concomitant]
  8. NEXIUM (ESOMEPRAZOLE MAGNESIUM) [Concomitant]
  9. MELOXICAM (MELOXICAM) [Concomitant]
  10. CYMBALTA [Concomitant]

REACTIONS (2)
  - Rash pruritic [None]
  - Drug ineffective [None]
